FAERS Safety Report 5709729-6 (Version None)
Quarter: 2008Q2

REPORT INFORMATION
  Report Type: 
  Country: None (occurrence: None)
  Receive Date: 20080418
  Receipt Date: 20070504
  Transmission Date: 20081010
  Serious: No
  Sender: FDA-Public Use
  Company Number: US-ASTRAZENECA-2007UW09503

PATIENT
  Age: 83 Year
  Sex: Male
  Weight: 108.9 kg

DRUGS (3)
  1. CASODEX [Suspect]
     Indication: PROSTATE CANCER
     Route: 048
     Dates: start: 20060101
  2. VITAMINS [Concomitant]
  3. LUPRON [Concomitant]

REACTIONS (1)
  - ARTHROPATHY [None]
